FAERS Safety Report 16698034 (Version 5)
Quarter: 2019Q4

REPORT INFORMATION
  Report Type: Spontaneous
  Country: CA (occurrence: CA)
  Receive Date: 20190813
  Receipt Date: 20191014
  Transmission Date: 20200122
  Serious: Yes (Hospitalization)
  Sender: FDA-Public Use
  Company Number: CA-PFIZER INC-2019305012

PATIENT
  Age: 61 Year
  Sex: Male

DRUGS (4)
  1. SUTENT [Suspect]
     Active Substance: SUNITINIB MALATE
     Dosage: 37.5 MG, CYCLIC (1 CAP OF 12.5MG WITH 1 CAP OF 25MG) ONCE DAILY FOR 28 DAYS THEN STOP FOR 14 DAYS)
     Route: 048
     Dates: start: 2019, end: 201909
  2. ZANTAC [Concomitant]
     Active Substance: RANITIDINE HYDROCHLORIDE
     Dosage: UNK
  3. SUTENT [Suspect]
     Active Substance: SUNITINIB MALATE
     Indication: METASTATIC RENAL CELL CARCINOMA
     Dosage: 50 MG, DAILY
     Route: 048
     Dates: start: 201906, end: 2019
  4. IBRANCE [Concomitant]
     Active Substance: PALBOCICLIB
     Indication: BREAST CANCER METASTATIC
     Dosage: 125 MG, CYCLIC (DAILY FOR 21 DAYS ON, 7 DAYS OFF)

REACTIONS (7)
  - Myalgia [Unknown]
  - Pyrexia [Not Recovered/Not Resolved]
  - Limb injury [Unknown]
  - Neoplasm progression [Unknown]
  - Pain [Unknown]
  - Scab [Not Recovered/Not Resolved]
  - Skin lesion [Not Recovered/Not Resolved]

NARRATIVE: CASE EVENT DATE: 2019
